FAERS Safety Report 7992209-5 (Version None)
Quarter: 2011Q4

REPORT INFORMATION
  Report Type: 
  Country: None (occurrence: None)
  Receive Date: 20111219
  Receipt Date: 20111017
  Transmission Date: 20120403
  Serious: No
  Sender: FDA-Public Use
  Company Number: US-ASTRAZENECA-2011SE62247

PATIENT
  Age: 65 Year
  Sex: Female

DRUGS (3)
  1. ZOLOFT [Concomitant]
  2. CRESTOR [Suspect]
     Route: 048
     Dates: start: 20110815
  3. XANAX [Concomitant]

REACTIONS (2)
  - GASTRITIS [None]
  - DIZZINESS [None]
